FAERS Safety Report 4598076-4 (Version None)
Quarter: 2005Q1

REPORT INFORMATION
  Report Type: 
  Country: None (occurrence: None)
  Receive Date: 20050301
  Receipt Date: 20050301
  Transmission Date: 20050727
  Serious: No
  Sender: FDA-Public Use
  Company Number: None

PATIENT
  Sex: Female

DRUGS (4)
  1. VECURONIUM [Suspect]
     Indication: LYMPHANGIOMA
     Dosage: 1 MG IV
     Route: 042
     Dates: start: 20050108
  2. VANCOMYCIN [Concomitant]
  3. BENADRYL [Concomitant]
  4. TYLENOL (CAPLET) [Concomitant]

REACTIONS (8)
  - BLOOD MAGNESIUM INCREASED [None]
  - BUNDLE BRANCH BLOCK LEFT [None]
  - DELAYED RECOVERY FROM ANAESTHESIA [None]
  - DRUG INTERACTION [None]
  - HYPERSENSITIVITY [None]
  - PARALYSIS [None]
  - PYREXIA [None]
  - TACHYCARDIA [None]
